FAERS Safety Report 6704117-8 (Version None)
Quarter: 2010Q2

REPORT INFORMATION
  Report Type: 
  Country: None (occurrence: None)
  Receive Date: 20100428
  Receipt Date: 20100416
  Transmission Date: 20101027
  Serious: Yes (Death, Hospitalization)
  Sender: FDA-Public Use
  Company Number: T06-CAN-00784-01

PATIENT
  Age: 88 Year
  Sex: Female
  Weight: 64 kg

DRUGS (12)
  1. MEMANTINE HCL [Suspect]
     Indication: DEMENTIA ALZHEIMER'S TYPE
     Dosage: 10 MG (10 MG, 1 IN 1 D), ORAL; 20 MG (20 MG, 1 IN 1 D), ORAL
     Route: 048
     Dates: start: 20050614, end: 20060111
  2. MEMANTINE HCL [Suspect]
     Indication: DEMENTIA ALZHEIMER'S TYPE
     Dosage: 10 MG (10 MG, 1 IN 1 D), ORAL; 20 MG (20 MG, 1 IN 1 D), ORAL
     Route: 048
     Dates: start: 20060112, end: 20060123
  3. ARICEPT [Concomitant]
  4. HYDROCHLOROTHIAZIDE [Concomitant]
  5. VERAPAMIL [Concomitant]
  6. GLUCOSAMINE (GLUCOSAMINE) [Concomitant]
  7. VITAMIN C (VITAMIN C) [Concomitant]
  8. VITAMIN E (VEGETABLE OIL) [Concomitant]
  9. GARLIC PILL (GARLIC) [Concomitant]
  10. GINKO BILOBA (GINKGO BILOBA) [Concomitant]
  11. CALCIUM MAGNESIUM [Concomitant]
  12. METHYLCELLULOSE (METHYLCELLULOSE) [Concomitant]

REACTIONS (9)
  - ATRIAL FIBRILLATION [None]
  - BUNDLE BRANCH BLOCK LEFT [None]
  - CARDIAC FAILURE [None]
  - LYMPHOCYTE COUNT INCREASED [None]
  - MEAN CELL VOLUME INCREASED [None]
  - MYOCARDIAL ISCHAEMIA [None]
  - PNEUMONIA [None]
  - VENTRICULAR EXTRASYSTOLES [None]
  - WHITE BLOOD CELL COUNT INCREASED [None]
